FAERS Safety Report 9454725 (Version 2)
Quarter: 2013Q3

REPORT INFORMATION
  Report Type: Spontaneous
  Country: US (occurrence: US)
  Receive Date: 20130812
  Receipt Date: 20130821
  Transmission Date: 20140515
  Serious: Yes (Other)
  Sender: FDA-Public Use
  Company Number: US-PFIZER INC-2013229668

PATIENT
  Age: 64 Year
  Sex: Male
  Weight: 150.11 kg

DRUGS (21)
  1. ENBREL [Suspect]
     Dosage: UNK
  2. XELJANZ [Suspect]
     Dosage: UNK
  3. FORTICAL [Suspect]
     Dosage: 200 IU/INH ONE SPRAY, QD
  4. HUMIRA [Suspect]
     Dosage: UNK
  5. FOLIC ACID [Concomitant]
     Dosage: 1 MG, QD 1 TAB
  6. ALLOPURINOL [Concomitant]
     Dosage: 100 MG, 3 TAB, QD
  7. SERTRALINE [Concomitant]
     Dosage: 50 MG, QD 1 TAB
  8. OXYCONTIN [Concomitant]
     Dosage: 20 MG, BID 1 TAB ER
  9. NEXIUM [Concomitant]
     Dosage: 40 MG, QD, DR
  10. LEVOTHYROXINE [Concomitant]
     Dosage: 50 MUG, QD
  11. TAMSULOSIN [Concomitant]
     Dosage: 0.4 MG, QD
  12. FUROSEMIDE [Concomitant]
     Dosage: 20 MG, QD
  13. LEVOCETIRIZINE [Concomitant]
     Dosage: 5 MG, QD
  14. COMBIVENT [Concomitant]
     Dosage: 103 MCG- 18 MCG/INH 1 PUFF QID
  15. CYANOCOBALAMIN [Concomitant]
     Dosage: 1000 MUG/ML, QMO
  16. MVI [Concomitant]
     Dosage: UNK UNK,  1 TAB QD
  17. VITAMIN D3 [Concomitant]
     Dosage: 2000 IU, QD
  18. VITAMIN E [Concomitant]
     Dosage: 400 IU, BID
  19. ASPIRE [Concomitant]
     Dosage: 81 MG, QOD 1 TAB
  20. FERROUS SULFATE [Concomitant]
     Dosage: 325 MG, QD
  21. PREDNISONE [Concomitant]
     Dosage: 5 MG, AS NECESSARY

REACTIONS (18)
  - Renal failure chronic [Unknown]
  - Deep vein thrombosis [Unknown]
  - Non-alcoholic steatohepatitis [Unknown]
  - Gouty arthritis [Unknown]
  - Toxicity to various agents [Unknown]
  - Mobility decreased [Unknown]
  - Arthropathy [Unknown]
  - Oedema peripheral [Unknown]
  - Spinal pain [Unknown]
  - Musculoskeletal stiffness [Unknown]
  - Purpura [Unknown]
  - Osteoarthritis [Unknown]
  - Osteopenia [Unknown]
  - Tenosynovitis stenosans [Unknown]
  - Drug hypersensitivity [Unknown]
  - Swelling [Unknown]
  - Fluid retention [Unknown]
  - Injection site reaction [Unknown]
